FAERS Safety Report 24642844 (Version 3)
Quarter: 2025Q2

REPORT INFORMATION
  Report Type: Spontaneous
  Country: US (occurrence: US)
  Receive Date: 20241120
  Receipt Date: 20250512
  Transmission Date: 20250717
  Serious: Yes (Other)
  Sender: PFIZER
  Company Number: US-PFIZER INC-202400302585

PATIENT
  Age: 59 Year
  Sex: Male

DRUGS (24)
  1. INLYTA [Suspect]
     Active Substance: AXITINIB
     Indication: Renal cell carcinoma
     Dosage: THREE 1MG TABLETS EVERY 12 HOURS
     Route: 048
     Dates: start: 20240412
  2. INLYTA [Suspect]
     Active Substance: AXITINIB
     Dosage: THREE 1MG TABLETS EVERY 12 HOURS
     Route: 048
     Dates: start: 20240412, end: 202410
  3. INLYTA [Suspect]
     Active Substance: AXITINIB
     Dosage: THREE 1MG TABLETS EVERY 12 HOURS
     Route: 048
     Dates: start: 20241108
  4. INLYTA [Suspect]
     Active Substance: AXITINIB
     Dosage: 2MG EVERY 12 HOURS
     Dates: start: 20250317
  5. INLYTA [Suspect]
     Active Substance: AXITINIB
     Dates: start: 20250508
  6. DOXYCYCLINE [Concomitant]
     Active Substance: DOXYCYCLINE
  7. ACETAMINOPHEN\HYDROCODONE [Concomitant]
     Active Substance: ACETAMINOPHEN\HYDROCODONE
  8. OXYCODONE [Concomitant]
     Active Substance: OXYCODONE
  9. IRBESARTAN [Concomitant]
     Active Substance: IRBESARTAN
  10. VITAMIN D3 [Concomitant]
     Active Substance: CHOLECALCIFEROL
  11. TOUJEO [Concomitant]
     Active Substance: INSULIN GLARGINE
  12. LYRICA [Concomitant]
     Active Substance: PREGABALIN
  13. ATORVASTATIN [Concomitant]
     Active Substance: ATORVASTATIN
  14. ALLOPURINOL [Concomitant]
     Active Substance: ALLOPURINOL
  15. PANTOPRAZOLE [Concomitant]
     Active Substance: PANTOPRAZOLE
  16. METFORMIN HYDROCHLORIDE [Concomitant]
     Active Substance: METFORMIN HYDROCHLORIDE
  17. METOPROLOL [Concomitant]
     Active Substance: METOPROLOL
  18. FISH OIL [Concomitant]
     Active Substance: FISH OIL
  19. COENZYME Q10 [Concomitant]
     Active Substance: DIETARY SUPPLEMENT\UBIDECARENONE
  20. CURCUMIN [Concomitant]
     Active Substance: CURCUMIN
  21. HERBALS [Concomitant]
     Active Substance: HERBALS
  22. DOXYCYCLINE HYCLATE [Concomitant]
     Active Substance: DOXYCYCLINE HYCLATE
  23. METOPROLOL SUCCINATE [Concomitant]
     Active Substance: METOPROLOL SUCCINATE
  24. COLECALCIFEROL/FISH OIL [Concomitant]

REACTIONS (4)
  - Limb operation [Recovering/Resolving]
  - Knee operation [Unknown]
  - Diarrhoea [Recovered/Resolved]
  - Nausea [Recovered/Resolved]

NARRATIVE: CASE EVENT DATE: 20241001
